FAERS Safety Report 9841325 (Version 1)
Quarter: 2013Q4

REPORT INFORMATION
  Report Type: Spontaneous
  Country: US (occurrence: None)
  Receive Date: 20131219
  Receipt Date: 20131219
  Transmission Date: 20140711
  Serious: Yes (Other)
  Sender: FDA-Public Use
  Company Number: 163-20785-10041947

PATIENT
  Age: 78 Year
  Sex: Female

DRUGS (1)
  1. THALOMID [Suspect]
     Indication: PLASMA CELL MYELOMA
     Dosage: 200 MG, 1 IN 1 D, PO
     Route: 048
     Dates: start: 20100319

REACTIONS (7)
  - Syncope [None]
  - Adverse event [None]
  - Chills [None]
  - Gait disturbance [None]
  - Dizziness [None]
  - Asthenia [None]
  - Tremor [None]
